FAERS Safety Report 4522361-5 (Version None)
Quarter: 2004Q4

REPORT INFORMATION
  Report Type: 
  Country: None (occurrence: None)
  Receive Date: 20041209
  Receipt Date: 20041201
  Transmission Date: 20050328
  Serious: Yes (Hospitalization)
  Sender: FDA-Public Use
  Company Number: NL-GLAXOSMITHKLINE-B0350137B

PATIENT
  Age: 52 Year
  Sex: Female

DRUGS (1)
  1. TOPOTECAN [Suspect]
     Indication: CARCINOMA
     Dosage: 2.3MGM2 SEE DOSAGE TEXT
     Route: 048
     Dates: start: 20041119, end: 20041123

REACTIONS (7)
  - ANAEMIA [None]
  - DEHYDRATION [None]
  - DIARRHOEA [None]
  - NAUSEA [None]
  - NEUTROPENIA [None]
  - THROMBOCYTOPENIA [None]
  - VOMITING [None]
